FAERS Safety Report 5985125-1 (Version None)
Quarter: 2008Q4

REPORT INFORMATION
  Report Type: 
  Country: None (occurrence: None)
  Receive Date: 20081208
  Receipt Date: 20081123
  Transmission Date: 20090506
  Serious: Yes (Death, Hospitalization)
  Sender: FDA-Public Use
  Company Number: DE-GENENTECH-251822

PATIENT
  Sex: Male
  Weight: 86 kg

DRUGS (2)
  1. RITUXIMAB [Suspect]
     Indication: LYMPHOCYTIC LEUKAEMIA
     Dosage: 787 MG, Q3D
     Route: 042
     Dates: start: 20071025
  2. BENDAMUSTINE [Suspect]
     Indication: LYMPHOCYTIC LEUKAEMIA
     Dosage: 90 MG/M2, UNK
     Route: 042
     Dates: start: 20071028

REACTIONS (3)
  - HEPATIC FAILURE [None]
  - PANCYTOPENIA [None]
  - SUICIDE ATTEMPT [None]
